FAERS Safety Report 23088657 (Version 1)
Quarter: 2023Q4

REPORT INFORMATION
  Report Type: Spontaneous
  Country: DE (occurrence: DE)
  Receive Date: 20231020
  Receipt Date: 20231020
  Transmission Date: 20240109
  Serious: Yes (Other)
  Sender: FDA-Public Use
  Company Number: DE-ELI_LILLY_AND_COMPANY-DE202310003534

PATIENT
  Age: 26 Year
  Sex: Male

DRUGS (1)
  1. OLANZAPINE PAMOATE [Suspect]
     Active Substance: OLANZAPINE PAMOATE
     Indication: Schizophrenia
     Dosage: 8:50 A.M. LONG ACTING INTRAMUSCULAR (LAIM)
     Route: 030

REACTIONS (7)
  - Cardiovascular disorder [Unknown]
  - Blood pressure increased [Unknown]
  - Post-injection delirium sedation syndrome [Unknown]
  - Confusional state [Unknown]
  - Partial seizures [Unknown]
  - Somnolence [Unknown]
  - Dizziness [Unknown]
